FAERS Safety Report 4705118-1 (Version None)
Quarter: 2005Q3

REPORT INFORMATION
  Report Type: 
  Country: None (occurrence: None)
  Receive Date: 20050701
  Receipt Date: 20050621
  Transmission Date: 20060218
  Serious: Yes (Hospitalization)
  Sender: FDA-Public Use
  Company Number: 200511641EU

PATIENT
  Age: 91 Year
  Sex: Male

DRUGS (5)
  1. SEGURIL [Suspect]
     Indication: LEFT VENTRICULAR FAILURE
     Route: 048
     Dates: start: 20050215, end: 20050301
  2. EMCONCOR [Suspect]
     Indication: HYPERTENSIVE NEPHROPATHY
     Route: 048
     Dates: end: 20050301
  3. LOSARTAN [Suspect]
     Indication: HYPERTENSIVE NEPHROPATHY
     Route: 048
     Dates: end: 20050301
  4. TROMALYT [Concomitant]
     Route: 048
  5. LABILENO [Concomitant]
     Route: 048
     Dates: start: 20040301, end: 20050301

REACTIONS (1)
  - SYNCOPE [None]
